FAERS Safety Report 24223154 (Version 1)
Quarter: 2024Q3

REPORT INFORMATION
  Report Type: Spontaneous
  Country: KR (occurrence: KR)
  Receive Date: 20240819
  Receipt Date: 20240819
  Transmission Date: 20241017
  Serious: Yes (Other)
  Sender: MYLAN
  Company Number: KR-MYLANLABS-2024M1076401

PATIENT
  Age: 81 Year
  Sex: Male

DRUGS (1)
  1. LYRICA [Suspect]
     Active Substance: PREGABALIN
     Indication: Prostate cancer
     Dosage: 50 MILLIGRAM, QD
     Route: 065
     Dates: start: 20230130

REACTIONS (2)
  - Hallucination [Recovered/Resolved]
  - Off label use [Unknown]

NARRATIVE: CASE EVENT DATE: 20230130
